FAERS Safety Report 9815967 (Version 1)
Quarter: 2014Q1

REPORT INFORMATION
  Report Type: Spontaneous
  Country: US (occurrence: US)
  Receive Date: 20140114
  Receipt Date: 20140114
  Transmission Date: 20141002
  Serious: Yes (Death)
  Sender: FDA-Public Use
  Company Number: US-PFIZER INC-2014008786

PATIENT
  Age: 52 Year
  Sex: Male

DRUGS (5)
  1. OXYCODONE HYDROCHLORIDE [Suspect]
  2. DIAZEPAM [Suspect]
  3. OXYMORPHONE [Suspect]
  4. ACETAMINOPHEN [Suspect]
  5. OXYCODONE/PARACETAMOL [Suspect]

REACTIONS (1)
  - Completed suicide [Fatal]
